FAERS Safety Report 8917386 (Version 2)
Quarter: 2013Q1

REPORT INFORMATION
  Report Type: Spontaneous
  Country: DE (occurrence: DE)
  Receive Date: 20121119
  Receipt Date: 20130103
  Transmission Date: 20140127
  Serious: Yes (Other)
  Sender: FDA-Public Use
  Company Number: DE-UCBSA-070957

PATIENT
  Age: 84 Year
  Sex: Female
  Weight: 63 kg

DRUGS (1)
  1. LEGANTO [Suspect]
     Indication: RESTLESS LEGS SYNDROME

REACTIONS (1)
  - Atrial fibrillation [Recovered/Resolved]
